FAERS Safety Report 23779887 (Version 2)
Quarter: 2024Q2

REPORT INFORMATION
  Report Type: Report from Study
  Country: JP (occurrence: JP)
  Receive Date: 20240424
  Receipt Date: 20240620
  Transmission Date: 20240716
  Serious: Yes (Hospitalization)
  Sender: FDA-Public Use
  Company Number: JP-PFIZER INC-PV202400045159

PATIENT
  Age: 19 Year
  Sex: Male
  Weight: 35.1 kg

DRUGS (12)
  1. SIROLIMUS [Suspect]
     Active Substance: SIROLIMUS
     Indication: Lymphatic malformation
     Dosage: 2 MG, DAILY ((2 MG,1 D)
     Route: 048
     Dates: start: 20230213, end: 20230227
  2. SIROLIMUS [Suspect]
     Active Substance: SIROLIMUS
     Dosage: 3 MG, DAILY (3 MG,1 D)
     Route: 048
     Dates: start: 20230228, end: 20230411
  3. SIROLIMUS [Suspect]
     Active Substance: SIROLIMUS
     Dosage: 3 MG, DAILY (3 MG,1 D)
     Route: 048
     Dates: start: 20230418, end: 20230615
  4. SIROLIMUS [Suspect]
     Active Substance: SIROLIMUS
     Dosage: 2 MG, DAILY ((2 MG,1 D)
     Route: 048
     Dates: start: 20230616
  5. HERBALS [Concomitant]
     Active Substance: HERBALS
     Indication: Lymphatic malformation
     Dosage: UNK (GRANULES)
     Route: 048
     Dates: start: 20230402
  6. CARBAZOCHROME SODIUM SULFONATE [Concomitant]
     Active Substance: CARBAZOCHROME SODIUM SULFONATE
     Dosage: UNK
     Route: 048
     Dates: start: 20230202, end: 20230413
  7. TRANSAMIN [Concomitant]
     Active Substance: TRANEXAMIC ACID
     Dosage: UNK
     Route: 048
     Dates: start: 20230202, end: 20230413
  8. CARBOCYSTEINE [Concomitant]
     Active Substance: CARBOCYSTEINE
     Dosage: UNK
     Route: 048
     Dates: end: 20230413
  9. AMBROXOL HYDROCHLORIDE [Concomitant]
     Active Substance: AMBROXOL HYDROCHLORIDE
     Dosage: UNK
     Route: 048
     Dates: end: 20230413
  10. SODIUM FERROUS CITRATE [Concomitant]
     Active Substance: SODIUM FERROUS CITRATE
     Dosage: UNK
     Route: 048
     Dates: start: 20230202, end: 20230413
  11. INTAL [Concomitant]
     Active Substance: CROMOLYN SODIUM
     Dosage: UNK
     Route: 055
     Dates: start: 20230202, end: 20230223
  12. PROCATEROL HYDROCHLORIDE [Concomitant]
     Active Substance: PROCATEROL HYDROCHLORIDE
     Dosage: UNK
     Route: 055
     Dates: start: 20230202, end: 20230223

REACTIONS (3)
  - Pneumonia aspiration [Recovered/Resolved]
  - Stomatitis [Recovered/Resolved]
  - Dermatitis acneiform [Not Recovered/Not Resolved]

NARRATIVE: CASE EVENT DATE: 20230301
